FAERS Safety Report 21646671 (Version 1)
Quarter: 2022Q4

REPORT INFORMATION
  Report Type: Spontaneous
  Country: PL (occurrence: PL)
  Receive Date: 20221127
  Receipt Date: 20221127
  Transmission Date: 20230112
  Serious: Yes (Hospitalization)
  Sender: FDA-Public Use
  Company Number: PL-TEVA-2022-PL-2831230

PATIENT
  Age: 31 Year
  Sex: Male

DRUGS (19)
  1. ATORVASTATIN [Interacting]
     Active Substance: ATORVASTATIN
     Indication: Product used for unknown indication
     Dosage: 40 MILLIGRAM DAILY;
     Route: 065
  2. SERTRALINE [Suspect]
     Active Substance: SERTRALINE HYDROCHLORIDE
     Indication: Back pain
     Dosage: 50 MILLIGRAM DAILY;
     Route: 065
  3. TADALAFIL [Suspect]
     Active Substance: TADALAFIL
     Indication: Erectile dysfunction
     Dosage: 10 MILLIGRAM DAILY;
     Route: 065
  4. TADALAFIL [Suspect]
     Active Substance: TADALAFIL
     Indication: Anorgasmia
  5. DICLOFENAC SODIUM [Suspect]
     Active Substance: DICLOFENAC SODIUM
     Indication: Back pain
     Dosage: 150 MILLIGRAM DAILY;
     Route: 065
  6. ACETAMINOPHEN\TRAMADOL [Suspect]
     Active Substance: ACETAMINOPHEN\TRAMADOL
     Indication: Back pain
     Dosage: 37.5/325 MG
     Route: 065
  7. ALPRAZOLAM [Interacting]
     Active Substance: ALPRAZOLAM
     Indication: Insomnia
     Dosage: 1 MILLIGRAM DAILY;
     Route: 065
  8. MORPHINE [Concomitant]
     Active Substance: MORPHINE
     Indication: Back pain
     Route: 042
  9. KETOPROFEN [Concomitant]
     Active Substance: KETOPROFEN
     Indication: Back pain
     Route: 042
  10. FUROSEMIDE [Concomitant]
     Active Substance: FUROSEMIDE
     Indication: Cardiac disorder
     Route: 042
  11. METOPROLOL [Concomitant]
     Active Substance: METOPROLOL
     Indication: Cardiac disorder
     Route: 065
  12. KETAMINE [Concomitant]
     Active Substance: KETAMINE
     Indication: Back pain
     Route: 042
  13. VALPROATE SODIUM [Concomitant]
     Active Substance: VALPROATE SODIUM
     Indication: Back pain
     Route: 065
  14. MAGNESIUM SULFATE [Concomitant]
     Active Substance: MAGNESIUM SULFATE
     Indication: Back pain
     Route: 065
  15. BUPRENORPHINE [Concomitant]
     Active Substance: BUPRENORPHINE
     Indication: Back pain
     Dosage: TITRATED DOSE
     Route: 060
  16. BUPRENORPHINE [Concomitant]
     Active Substance: BUPRENORPHINE
     Indication: Sleep disorder
     Dosage: TRANSDERMAL THERAPEUTIC SYSTEM (TTS) AT 17.5 UG/H (HALF A PATCH, 35 UG/H) REPLACED EVERY 72 HOURS (1
     Route: 062
  17. AGOMELATINE [Concomitant]
     Active Substance: AGOMELATINE
     Indication: Depression
     Dosage: 25 MILLIGRAM DAILY;
     Route: 065
  18. LORNOXICAM [Concomitant]
     Active Substance: LORNOXICAM
     Indication: Back pain
     Dosage: 8 MILLIGRAM DAILY;
     Route: 048
  19. RAMIPRIL [Concomitant]
     Active Substance: RAMIPRIL
     Indication: Product used for unknown indication
     Dosage: 10 MILLIGRAM DAILY; ONGOING
     Route: 065

REACTIONS (2)
  - Drug interaction [Unknown]
  - Therapy non-responder [Unknown]
